FAERS Safety Report 5862290-8 (Version None)
Quarter: 2008Q3

REPORT INFORMATION
  Report Type: 
  Country: None (occurrence: None)
  Receive Date: 20080828
  Receipt Date: 20080822
  Transmission Date: 20090109
  Serious: Yes (Hospitalization, Other)
  Sender: FDA-Public Use
  Company Number: US-JNJFOC-20080602407

PATIENT
  Sex: Female
  Weight: 65.32 kg

DRUGS (5)
  1. REMICADE [Suspect]
     Route: 042
  2. REMICADE [Suspect]
     Route: 042
  3. REMICADE [Suspect]
     Route: 042
  4. REMICADE [Suspect]
     Indication: CROHN'S DISEASE
     Route: 042
  5. MERCAPTOPURINE [Concomitant]

REACTIONS (3)
  - BLADDER DISORDER [None]
  - PERICARDIAL EFFUSION [None]
  - PLEURAL EFFUSION [None]
